FAERS Safety Report 10077812 (Version 2)
Quarter: 2014Q2

REPORT INFORMATION
  Report Type: Report from Study
  Country: MX (occurrence: MX)
  Receive Date: 20140414
  Receipt Date: 20140509
  Transmission Date: 20141212
  Serious: Yes (Other)
  Sender: FDA-Public Use
  Company Number: PHHY2014MX045305

PATIENT
  Age: 60 Year
  Sex: Female

DRUGS (3)
  1. TEGRETOL [Suspect]
     Indication: CONVULSION
     Dosage: 2 DF (2 TABLETS), DAILY
     Route: 048
     Dates: start: 201402, end: 20140410
  2. HIGROTON [Suspect]
     Indication: HYPERTENSION
     Dosage: 1 DF (1 TABLET), DAILY
     Dates: start: 200704
  3. DRUG THERAPY NOS [Concomitant]
     Indication: RELAXATION THERAPY
     Dosage: 1 DF, Q72H
     Dates: start: 200904

REACTIONS (2)
  - Convulsion [Not Recovered/Not Resolved]
  - Drug ineffective [Recovered/Resolved]
